FAERS Safety Report 4282873-9 (Version None)
Quarter: 2004Q1

REPORT INFORMATION
  Report Type: 
  Country: None (occurrence: None)
  Receive Date: 20040130
  Receipt Date: 20030807
  Transmission Date: 20041129
  Serious: No
  Sender: FDA-Public Use
  Company Number: US-BRISTOL-MYERS SQUIBB COMPANY-12350104

PATIENT
  Age: 58 Year
  Sex: Female
  Weight: 73 kg

DRUGS (1)
  1. SERZONE [Suspect]
     Indication: DEPRESSION
     Dosage: PATIENT HAS BEEN ON SERZONE FOR ^SEVERAL YEARS^.SERZONE IS SCHEDULED TO BE STOPPED ON 10-AUG-03
     Route: 048

REACTIONS (1)
  - GAMMA-GLUTAMYLTRANSFERASE INCREASED [None]
